FAERS Safety Report 10554803 (Version 2)
Quarter: 2015Q2

REPORT INFORMATION
  Report Type: Report from Study
  Country: US (occurrence: US)
  Receive Date: 20141030
  Receipt Date: 20150515
  Transmission Date: 20150821
  Serious: Yes (Other)
  Sender: FDA-Public Use
  Company Number: US-ROCHE-1478392

PATIENT

DRUGS (8)
  1. TRASTUZUMAB [Suspect]
     Active Substance: TRASTUZUMAB
     Indication: METASTASES TO PERITONEUM
     Dosage: LOADING DOSE
     Route: 042
  2. FUROSEMIDE. [Suspect]
     Active Substance: FUROSEMIDE
     Indication: PROPHYLAXIS
     Dosage: USED FOR 10 DAYS
     Route: 065
  3. POTASSIUM IODIDE [Concomitant]
     Active Substance: POTASSIUM IODIDE
     Dosage: CONTINUED FOR 3 DAYS
     Route: 065
  4. 212PB TCMC-TRASTUZUMAB [Suspect]
     Active Substance: TRASTUZUMAB
     Indication: OVARIAN CANCER RECURRENT
  5. SALINE [Concomitant]
     Active Substance: SODIUM CHLORIDE
     Route: 065
  6. TRASTUZUMAB [Suspect]
     Active Substance: TRASTUZUMAB
     Indication: OVARIAN CANCER RECURRENT
  7. SPIRONOLACTONE. [Suspect]
     Active Substance: SPIRONOLACTONE
     Indication: PROPHYLAXIS
     Dosage: FOR 6 MONTHS
     Route: 065
  8. 212PB TCMC-TRASTUZUMAB [Suspect]
     Active Substance: TRASTUZUMAB
     Indication: METASTASES TO PERITONEUM
     Dosage: 50 ML LESS THAN 4 HOURS
     Route: 033

REACTIONS (5)
  - Rash [Unknown]
  - Dyspnoea [Unknown]
  - Thermal burn [Unknown]
  - Infection [Unknown]
  - Fistula [Unknown]
